FAERS Safety Report 13952377 (Version 1)
Quarter: 2017Q3

REPORT INFORMATION
  Report Type: Spontaneous
  Country: US (occurrence: US)
  Receive Date: 20170911
  Receipt Date: 20170911
  Transmission Date: 20171128
  Serious: No
  Sender: FDA-Public Use
  Company Number: US-TEVA-717410ACC

PATIENT
  Sex: Female

DRUGS (1)
  1. FENTANYL. [Suspect]
     Active Substance: FENTANYL
     Dosage: 25 MCG 5

REACTIONS (5)
  - Dizziness [Unknown]
  - Eye swelling [Unknown]
  - Lacrimation increased [Unknown]
  - Dyspnoea [Not Recovered/Not Resolved]
  - Pruritus [Unknown]
